FAERS Safety Report 5083578-7 (Version None)
Quarter: 2006Q3

REPORT INFORMATION
  Report Type: 
  Country: None (occurrence: None)
  Receive Date: 20060818
  Receipt Date: 20060815
  Transmission Date: 20061208
  Serious: Yes (Death)
  Sender: FDA-Public Use
  Company Number: US-GLAXOSMITHKLINE-A0616934A

PATIENT
  Age: 50 Year
  Sex: Female

DRUGS (5)
  1. ADVAIR DISKUS 100/50 [Suspect]
     Indication: ASTHMA
     Route: 055
  2. PREDNISONE [Concomitant]
  3. SINGULAIR [Concomitant]
  4. ACIPHEX [Concomitant]
  5. STEROID [Concomitant]
     Route: 045

REACTIONS (1)
  - DEATH [None]
